FAERS Safety Report 18011696 (Version 2)
Quarter: 2021Q4

REPORT INFORMATION
  Report Type: Report from Study
  Country: FR (occurrence: FR)
  Receive Date: 20200713
  Receipt Date: 20211103
  Transmission Date: 20220303
  Serious: Yes (Death, Other)
  Sender: FDA-Public Use
  Company Number: FR-JNJFOC-20200711707

PATIENT
  Age: 59 Year
  Sex: Male

DRUGS (3)
  1. BORTEZOMIB [Suspect]
     Active Substance: BORTEZOMIB
     Indication: Plasma cell myeloma
     Dosage: 1.3 MILLIGRAM/SQ. METER, Q2WEEKS
     Route: 065
     Dates: end: 20180129
  2. DEXAMETHASONE [Suspect]
     Active Substance: DEXAMETHASONE
     Indication: Plasma cell myeloma
     Dosage: 20 MILLIGRAM, Q2WEEKS
     Route: 065
     Dates: end: 20180129
  3. DARATUMUMAB [Suspect]
     Active Substance: DARATUMUMAB
     Indication: Plasma cell myeloma
     Dosage: 16 MILLIGRAM/KILOGRAM, Q3WEEKS
     Route: 042
     Dates: end: 20180129

REACTIONS (2)
  - Death [Fatal]
  - Cardiac arrest [Unknown]

NARRATIVE: CASE EVENT DATE: 20180212
